FAERS Safety Report 8208247-3 (Version None)
Quarter: 2012Q1

REPORT INFORMATION
  Report Type: 
  Country: None (occurrence: None)
  Receive Date: 20120314
  Receipt Date: 20120307
  Transmission Date: 20120608
  Serious: Yes (Death, Life-Threatening, Hospitalization, Other)
  Sender: FDA-Public Use
  Company Number: PHHY2012DE020235

PATIENT
  Sex: Female
  Weight: 105 kg

DRUGS (10)
  1. ALISKIREN [Suspect]
     Indication: HYPERTENSION
     Route: 048
  2. ALISKIREN [Suspect]
     Indication: RENAL DISORDER
     Dosage: 300 MG/DAY
     Route: 048
     Dates: start: 20090312
  3. DIOVAN [Suspect]
     Indication: HYPERTENSION
     Dosage: 320 MG/DAY
     Route: 048
     Dates: start: 20080101
  4. CALCIUM CHANNEL BLOCKERS [Concomitant]
  5. THIENOPYRIDINES [Concomitant]
  6. HMG COA REDUCTASE INHIBITORS [Concomitant]
  7. CHOLESTEROL LOWERING DRUG [Concomitant]
  8. SPIRONOLACTONE [Concomitant]
     Indication: OEDEMA
     Dosage: 12.5 MG/DAY
     Route: 048
     Dates: start: 20080101
  9. NITRATES [Concomitant]
  10. PLATELET AGGREGATION INHIBITORS [Concomitant]

REACTIONS (17)
  - ENDOCARDITIS [None]
  - CEREBROVASCULAR ACCIDENT [None]
  - OEDEMA PERIPHERAL [None]
  - PULMONARY EMBOLISM [None]
  - TACHYARRHYTHMIA [None]
  - HEPATIC FAILURE [None]
  - CONGESTIVE CARDIOMYOPATHY [None]
  - DEEP VEIN THROMBOSIS [None]
  - FILARIASIS [None]
  - PAIN [None]
  - RENAL FAILURE [None]
  - ARRHYTHMIA [None]
  - ATRIAL FIBRILLATION [None]
  - AORTIC STENOSIS [None]
  - VERTIGO [None]
  - ERYSIPELAS [None]
  - CARDIAC FAILURE [None]
